FAERS Safety Report 5386068-7 (Version None)
Quarter: 2007Q3

REPORT INFORMATION
  Report Type: 
  Country: None (occurrence: None)
  Receive Date: 20070710
  Receipt Date: 20070625
  Transmission Date: 20080115
  Serious: Yes (Death, Hospitalization)
  Sender: FDA-Public Use
  Company Number: 2007SI001632

PATIENT
  Age: 50 Year
  Sex: Male
  Weight: 87.0906 kg

DRUGS (6)
  1. DIAZEPAM [Suspect]
     Dosage: 5 MG; 3 TIMES A DAY; ORAL
     Route: 048
     Dates: start: 20041208
  2. LEXAPRO [Suspect]
     Dosage: ORAL
     Route: 048
     Dates: start: 20041122
  3. PAXIL [Suspect]
     Dosage: SEE IMAGE
     Route: 048
  4. RISPERDAL [Suspect]
     Dosage: 0.5 MG; 3 TIMES A DAY; ORAL
     Route: 048
     Dates: start: 20050207
  5. PAXIL CR [Suspect]
     Dosage: SEE IMAGE
     Route: 048
     Dates: start: 20050207
  6. GABAPENTIN [Suspect]
     Dosage: 300 MG; AT BEDTIME; ORAL
     Route: 048
     Dates: start: 20041227

REACTIONS (19)
  - AGITATION [None]
  - ANXIETY [None]
  - COMPLETED SUICIDE [None]
  - CYSTITIS [None]
  - DECREASED APPETITE [None]
  - DYSPNOEA [None]
  - EAR DISCOMFORT [None]
  - EAR HAEMORRHAGE [None]
  - GENERAL PHYSICAL HEALTH DETERIORATION [None]
  - HYPOAESTHESIA FACIAL [None]
  - INJURY [None]
  - INSOMNIA [None]
  - INTERVERTEBRAL DISC DEGENERATION [None]
  - LETHARGY [None]
  - MUSCULOSKELETAL STIFFNESS [None]
  - NERVOUSNESS [None]
  - PARAESTHESIA [None]
  - RESTLESSNESS [None]
  - THROAT IRRITATION [None]
